FAERS Safety Report 19042507 (Version 1)
Quarter: 2021Q1

REPORT INFORMATION
  Report Type: Other
  Country: PT (occurrence: PT)
  Receive Date: 20210323
  Receipt Date: 20210323
  Transmission Date: 20210420
  Serious: Yes (Other)
  Sender: FDA-Public Use
  Company Number: PT-B.BRAUN MEDICAL INC.-2108317

PATIENT
  Age: 40 Year
  Sex: Female

DRUGS (9)
  1. LIDOCAINE. [Concomitant]
     Active Substance: LIDOCAINE
  2. SEVOFLURANE. [Concomitant]
     Active Substance: SEVOFLURANE
  3. ONDANSETRON [Concomitant]
     Active Substance: ONDANSETRON
  4. PROPOFOL. [Concomitant]
     Active Substance: PROPOFOL
  5. HYDROCORTISONE (HYDROCORTISONE ACETATE) [Concomitant]
     Active Substance: HYDROCORTISONE ACETATE
  6. SUGAMMADEX SODIUM [Concomitant]
     Active Substance: SUGAMMADEX SODIUM
  7. ACETAMINOPHEN INJECTION 1,000 MG/100 ML (10 MG/ML) ? NDA 204957 [Suspect]
     Active Substance: ACETAMINOPHEN
  8. FENTANYL. [Concomitant]
     Active Substance: FENTANYL
  9. ROCURONIUM BROMIDE. [Concomitant]
     Active Substance: ROCURONIUM BROMIDE

REACTIONS (1)
  - Bradycardia [Recovered/Resolved]
